FAERS Safety Report 4628020-2 (Version None)
Quarter: 2005Q2

REPORT INFORMATION
  Report Type: 
  Country: None (occurrence: None)
  Receive Date: 20050401
  Receipt Date: 20030505
  Transmission Date: 20051028
  Serious: Yes (Hospitalization)
  Sender: FDA-Public Use
  Company Number: GXKR2003US00564

PATIENT
  Age: 89 Year
  Sex: Female

DRUGS (8)
  1. CIPROFLOXACIN [Suspect]
     Indication: CYSTITIS
     Dosage: 250 MG, BID
  2. GLYBURIDE [Suspect]
     Indication: DIABETES MELLITUS
     Dosage: 5 MG
  3. LANSOPRAZOLE [Concomitant]
  4. CALCITONIN SALMON [Concomitant]
  5. CELECOXIB (CELECOXIB) [Concomitant]
  6. DOCUSATE SODIUM (DOCUSATE SODIUM) [Concomitant]
  7. DOCUSATE SODIUM W/SENNA (DOCUSATE SODIUM, SENNA, SENNA ALEXANDRINA) [Concomitant]
  8. CITALOPRAM (CITALOPRAM) [Concomitant]

REACTIONS (6)
  - CONFUSIONAL STATE [None]
  - CYSTITIS [None]
  - DRUG INTERACTION [None]
  - DYSARTHRIA [None]
  - HYPERHIDROSIS [None]
  - HYPOGLYCAEMIA [None]
